FAERS Safety Report 19746172 (Version 1)
Quarter: 2021Q3

REPORT INFORMATION
  Report Type: Spontaneous
  Country: US (occurrence: US)
  Receive Date: 20210825
  Receipt Date: 20210825
  Transmission Date: 20211014
  Serious: No
  Sender: FDA-Public Use
  Company Number: US-TAKEDA-2021TUS052484

PATIENT
  Sex: Female

DRUGS (1)
  1. HYQVIA [Suspect]
     Active Substance: HUMAN IMMUNOGLOBULIN G\HYALURONIDASE RECOMBINANT HUMAN
     Indication: AUTOIMMUNE THYROIDITIS
     Dosage: 10 GRAM, Q2WEEKS
     Route: 058

REACTIONS (3)
  - Rash [Unknown]
  - Off label use [Unknown]
  - Asthma [Unknown]
